FAERS Safety Report 5420460-7 (Version None)
Quarter: 2007Q3

REPORT INFORMATION
  Report Type: 
  Country: None (occurrence: None)
  Receive Date: 20070821
  Receipt Date: 20070814
  Transmission Date: 20080115
  Serious: Yes (Other)
  Sender: FDA-Public Use
  Company Number: PHBS2007BR13592

PATIENT
  Age: 68 Year
  Sex: Male
  Weight: 100 kg

DRUGS (3)
  1. DIOVAN AMLO [Suspect]
     Indication: HYPERTENSION
     Dosage: 160/5MG
     Route: 048
  2. NOVALGINA [Concomitant]
     Indication: HEADACHE
  3. RANITIDINE [Concomitant]
     Indication: GASTRITIS

REACTIONS (5)
  - HYPERTENSION [None]
  - IRRITABILITY [None]
  - NERVOUSNESS [None]
  - PENILE DISCHARGE [None]
  - PENILE OPERATION [None]
